FAERS Safety Report 9518206 (Version 1)
Quarter: 2013Q3

REPORT INFORMATION
  Report Type: Spontaneous
  Country: US (occurrence: US)
  Receive Date: 20130912
  Receipt Date: 20130912
  Transmission Date: 20140515
  Serious: Yes (Hospitalization)
  Sender: FDA-Public Use
  Company Number: US-JNJFOC-20130903632

PATIENT
  Sex: Female
  Weight: 69 kg

DRUGS (4)
  1. DITROPAN XL [Suspect]
     Indication: DYSURIA
     Route: 048
  2. DITROPAN XL [Suspect]
     Indication: GENITAL INFECTION FEMALE
     Route: 048
  3. UNSPECIFIED ARTHRITIC MEDICATION [Concomitant]
     Indication: ARTHRITIS
     Route: 065
  4. BLOOD PRESSURE MEDICATION NOS [Concomitant]
     Indication: BLOOD PRESSURE
     Route: 065

REACTIONS (3)
  - Pancreatic carcinoma [Recovered/Resolved]
  - Abdominal hernia [Recovered/Resolved]
  - Heart rate irregular [Recovered/Resolved]
